FAERS Safety Report 13644143 (Version 1)
Quarter: 2017Q2

REPORT INFORMATION
  Report Type: Report from Study
  Country: US (occurrence: US)
  Receive Date: 20170612
  Receipt Date: 20170612
  Transmission Date: 20170830
  Serious: Yes (Death, Hospitalization)
  Sender: FDA-Public Use
  Company Number: US-ACTELION-A-NJ2015-122163

PATIENT
  Age: 85 Year
  Sex: Male

DRUGS (2)
  1. TRACLEER [Suspect]
     Active Substance: BOSENTAN
     Indication: PULMONARY ARTERIAL HYPERTENSION
     Dosage: UNK
     Route: 048
     Dates: end: 201507
  2. OXYGEN. [Concomitant]
     Active Substance: OXYGEN

REACTIONS (2)
  - Acute respiratory failure [Fatal]
  - Fluid retention [Unknown]

NARRATIVE: CASE EVENT DATE: 20161204
